FAERS Safety Report 18908900 (Version 1)
Quarter: 2021Q1

REPORT INFORMATION
  Report Type: Spontaneous
  Country: DE (occurrence: DE)
  Receive Date: 20210218
  Receipt Date: 20210218
  Transmission Date: 20210420
  Serious: Yes (Other)
  Sender: FDA-Public Use
  Company Number: DE-TEVA-2021-DE-1880711

PATIENT
  Age: 78 Year
  Sex: Male

DRUGS (3)
  1. ALPRAZOLAM?RATIOPHARM 0.5 MG TABLETTEN [Suspect]
     Active Substance: ALPRAZOLAM
     Indication: SLEEP DISORDER
     Dosage: .5 MILLIGRAM DAILY; IN THE EVENING FOR SLEEP DISORDER
     Route: 048
  2. ALPRAZOLAM?RATIOPHARM 0.5 MG TABLETTEN [Suspect]
     Active Substance: ALPRAZOLAM
     Dosage: 1 MILLIGRAM DAILY; 1 DOSAGE FORM IS 1 TABLET, IN THE EVENING FOR SLEEP DISORDER
     Route: 048
     Dates: start: 2020
  3. ALPRAZOLAM?RATIOPHARM 0.5 MG TABLETTEN [Suspect]
     Active Substance: ALPRAZOLAM
     Indication: ANXIETY
     Dosage: SINCE 30?35 YEARS, SEVERAL TABLETS PER DAY FOR ANXIETY STATE
     Route: 048

REACTIONS (3)
  - Arrhythmia [Unknown]
  - Anxiety [Unknown]
  - Middle insomnia [Unknown]

NARRATIVE: CASE EVENT DATE: 202008
